FAERS Safety Report 6839571-4 (Version None)
Quarter: 2010Q3

REPORT INFORMATION
  Report Type: 
  Country: None (occurrence: None)
  Receive Date: 20100714
  Receipt Date: 20100315
  Transmission Date: 20110219
  Serious: No
  Sender: FDA-Public Use
  Company Number: A0850233A

PATIENT
  Age: 60 Year
  Sex: Female

DRUGS (7)
  1. FLOVENT [Suspect]
     Indication: CHRONIC OBSTRUCTIVE PULMONARY DISEASE
     Dosage: 2PUFF TWICE PER DAY
     Route: 055
  2. TOPAMAX [Concomitant]
  3. LORAZEPAM [Concomitant]
  4. IBUPROFEN [Concomitant]
  5. MULTI-VITAMINS [Concomitant]
  6. METAMUCIL-2 [Concomitant]
  7. OMEPRAZOLE [Concomitant]

REACTIONS (7)
  - ABDOMINAL DISCOMFORT [None]
  - ABDOMINAL DISTENSION [None]
  - APTYALISM [None]
  - CANDIDIASIS [None]
  - NAUSEA [None]
  - SALIVARY HYPERSECRETION [None]
  - SINUSITIS [None]
